FAERS Safety Report 6860931-X (Version None)
Quarter: 2010Q3

REPORT INFORMATION
  Report Type: 
  Country: None (occurrence: None)
  Receive Date: 20100716
  Receipt Date: 20100709
  Transmission Date: 20110219
  Serious: Yes (Hospitalization)
  Sender: FDA-Public Use
  Company Number: 1000015028

PATIENT
  Age: 66 Year
  Sex: Female

DRUGS (10)
  1. LEXAPRO [Suspect]
     Indication: DEPRESSION
     Dosage: 20 MG (20 MG, 1 IN 1 D), ORAL; 30 MG (20 MG, 1 IN 1 D), ORAL
     Route: 048
     Dates: start: 20100101, end: 20100501
  2. LEXAPRO [Suspect]
     Indication: DEPRESSION
     Dosage: 20 MG (20 MG, 1 IN 1 D), ORAL; 30 MG (20 MG, 1 IN 1 D), ORAL
     Route: 048
     Dates: start: 20100501
  3. GABAPENTIN [Concomitant]
  4. SIMVASTATIN [Concomitant]
  5. VERAPAMIL [Concomitant]
  6. LISINOPRIL [Concomitant]
  7. LEVOTHROID [Concomitant]
  8. OMEPRAZOLE [Concomitant]
  9. TEMAZEPAM [Concomitant]
  10. HYDROCODONE BITARTRATE [Concomitant]

REACTIONS (4)
  - HAEMATOCRIT DECREASED [None]
  - HAEMOGLOBIN DECREASED [None]
  - OVERDOSE [None]
  - WHITE BLOOD CELL COUNT INCREASED [None]
